FAERS Safety Report 7212157-8 (Version None)
Quarter: 2011Q1

REPORT INFORMATION
  Report Type: 
  Country: None (occurrence: None)
  Receive Date: 20110106
  Receipt Date: 20101215
  Transmission Date: 20110831
  Serious: Yes (Other)
  Sender: FDA-Public Use
  Company Number: US-BAYER-201033818NA

PATIENT
  Sex: Female
  Weight: 88.435 kg

DRUGS (16)
  1. YAZ [Suspect]
     Indication: PRODUCT USED FOR UNKNOWN INDICATION
     Dates: start: 20040101
  2. ZITHROMAX [Concomitant]
     Dosage: UNK
     Route: 048
     Dates: start: 20040218
  3. LEXAPRO [Concomitant]
     Dosage: 10 MG, UNK
     Route: 048
     Dates: start: 20040426
  4. YASMIN [Suspect]
     Indication: MENSTRUAL CYCLE MANAGEMENT
  5. MOTRIN [Concomitant]
     Dosage: 600 MG, UNK
     Route: 048
     Dates: start: 20040329
  6. MOTRIN [Concomitant]
     Dosage: 600 MG, UNK
     Route: 048
     Dates: start: 20040514
  7. AXERT [Concomitant]
     Indication: MIGRAINE
     Dosage: UNK
     Route: 048
  8. LEXAPRO [Concomitant]
     Dosage: 10 MG, UNK
     Dates: start: 20040329
  9. DARVOCET [Concomitant]
     Dosage: UNK
     Dates: start: 20040316
  10. DICYCLOMINE [Concomitant]
     Dosage: 20 MG, UNK
     Route: 048
     Dates: start: 20040301
  11. YASMIN [Suspect]
     Indication: POLYCYSTIC OVARIES
     Dosage: UNK
     Dates: start: 20010101, end: 20040401
  12. BENADRYL [Concomitant]
     Dosage: 20 MG, BID
     Route: 048
     Dates: start: 20040302
  13. OCELLA [Suspect]
     Indication: PRODUCT USED FOR UNKNOWN INDICATION
     Dates: start: 20040101
  14. MOTRIN [Concomitant]
     Dosage: 600 MG, UNK
     Route: 048
     Dates: start: 20040302
  15. ZITHROMAX [Concomitant]
     Dosage: UNK
     Dates: start: 20030331
  16. INDERAL LA [Concomitant]
     Dosage: 80 MG, UNK
     Route: 048
     Dates: start: 20040315

REACTIONS (3)
  - PAIN [None]
  - DYSPNOEA [None]
  - CEREBROVASCULAR ACCIDENT [None]
